FAERS Safety Report 6170904-0 (Version None)
Quarter: 2009Q2

REPORT INFORMATION
  Report Type: 
  Country: None (occurrence: None)
  Receive Date: 20090427
  Receipt Date: 20090414
  Transmission Date: 20091009
  Serious: Yes (Death)
  Sender: FDA-Public Use
  Company Number: 225610

PATIENT
  Age: 11 Year
  Sex: Male

DRUGS (32)
  1. ETOPOSIDE [Suspect]
     Indication: ACUTE LYMPHOCYTIC LEUKAEMIA RECURRENT
     Dosage: 100 UNKNOWN
     Dates: start: 20090105, end: 20090109
  2. CYCLOPHOSPHAMIDE [Suspect]
     Indication: ACUTE LYMPHOCYTIC LEUKAEMIA RECURRENT
     Dates: start: 20090105, end: 20090109
  3. CLOFARABINE [Suspect]
     Indication: ACUTE LYMPHOCYTIC LEUKAEMIA RECURRENT
     Dosage: 40 MG/M2
     Route: 042
     Dates: start: 20090105, end: 20090109
  4. DEXAMETHASONE 4MG TAB [Concomitant]
  5. LACTULOSE [Concomitant]
  6. LOPERAMIDE HCL [Concomitant]
  7. METOCLOPRAMIDE [Concomitant]
  8. OMEPRAZOLE [Concomitant]
  9. LORAZEPAM [Concomitant]
  10. AMIBISOME /00057501/ [Concomitant]
  11. AMILORIDE HYDROCHLORIDE [Concomitant]
  12. AMOXICILLIN [Concomitant]
  13. BENZYDAMINE [Concomitant]
  14. CEFTAZIDIME [Concomitant]
  15. CHLORHEXIDINE GLUCONATE [Concomitant]
  16. CIPROFLOXACIN [Concomitant]
  17. CO-TRIMOXAZOLE [Concomitant]
  18. CYCLIZINE [Concomitant]
  19. DIHYDROCODEINE BITARTRATE INJ [Concomitant]
  20. FLUCONAZOLE [Concomitant]
  21. FRUSEMIDE /00032601/ [Concomitant]
  22. GENTAMICIN [Concomitant]
  23. MEROPENEM [Concomitant]
  24. METOCLOPRAMIDE [Concomitant]
  25. METRONIDAZOLE [Concomitant]
  26. MORPHINE [Concomitant]
  27. NIFEDIPINE [Concomitant]
  28. PARACETAMOL [Concomitant]
  29. RASBURICASE [Concomitant]
  30. TEICOPLANIN [Concomitant]
  31. VANCOMYCIN HCL [Concomitant]
  32. VINCRISTINE [Concomitant]

REACTIONS (15)
  - CORONA VIRUS INFECTION [None]
  - ENTEROCOCCAL INFECTION [None]
  - FLUID RETENTION [None]
  - GASTROINTESTINAL INFECTION [None]
  - HEADACHE [None]
  - HEPATITIS CHOLESTATIC [None]
  - HYPERTENSION [None]
  - HYPOKALAEMIA [None]
  - HYPOTENSION [None]
  - ILEUS [None]
  - LOSS OF CONSCIOUSNESS [None]
  - MUCOSAL INFLAMMATION [None]
  - NAUSEA [None]
  - NEUTROPENIC COLITIS [None]
  - SEPSIS [None]
